FAERS Safety Report 8080163-X (Version None)
Quarter: 2012Q1

REPORT INFORMATION
  Report Type: 
  Country: None (occurrence: None)
  Receive Date: 20120127
  Receipt Date: 20110307
  Transmission Date: 20120608
  Serious: No
  Sender: FDA-Public Use
  Company Number: US-ABBOTT-11P-163-0707672-00

PATIENT
  Age: 25 Year
  Sex: Female

DRUGS (5)
  1. MERCAPTOPURINE [Concomitant]
     Dosage: 25 MG DAILY
  2. CIPROFLOXACIN [Concomitant]
     Indication: PRODUCT USED FOR UNKNOWN INDICATION
  3. HUMIRA [Suspect]
     Indication: CROHN'S DISEASE
     Route: 058
     Dates: start: 20110221
  4. HUMIRA [Suspect]
     Dosage: 160 MG DAY
  5. HUMIRA [Suspect]

REACTIONS (1)
  - INJECTION SITE PAIN [None]
